FAERS Safety Report 16392822 (Version 1)
Quarter: 2019Q2

REPORT INFORMATION
  Report Type: Spontaneous
  Country: FR (occurrence: FR)
  Receive Date: 20190605
  Receipt Date: 20190605
  Transmission Date: 20190711
  Serious: Yes (Life-Threatening)
  Sender: FDA-Public Use
  Company Number: PHHY2019FR128396

PATIENT
  Age: 55 Year
  Sex: Female
  Weight: 110 kg

DRUGS (2)
  1. LEPTICUR [Suspect]
     Active Substance: TROPATEPINE HYDROCHLORIDE
     Indication: INTENTIONAL OVERDOSE
     Dosage: 60 MG, UNK
     Route: 048
     Dates: start: 20190504, end: 20190504
  2. CARBAMAZEPINE. [Suspect]
     Active Substance: CARBAMAZEPINE
     Indication: INTENTIONAL OVERDOSE
     Dosage: 8 G, UNK
     Route: 048
     Dates: start: 20190504, end: 20190504

REACTIONS (2)
  - Coma [Recovered/Resolved]
  - Poisoning deliberate [Recovered/Resolved]

NARRATIVE: CASE EVENT DATE: 20190504
